FAERS Safety Report 15043474 (Version 5)
Quarter: 2019Q4

REPORT INFORMATION
  Report Type: Spontaneous
  Country: US (occurrence: US)
  Receive Date: 20180621
  Receipt Date: 20191014
  Transmission Date: 20200122
  Serious: Yes (Hospitalization, Other)
  Sender: FDA-Public Use
  Company Number: US-SA-2018SA164247

PATIENT
  Age: 59 Year
  Sex: Female

DRUGS (2)
  1. AUBAGIO [Suspect]
     Active Substance: TERIFLUNOMIDE
     Dosage: 14 MG
     Route: 048
     Dates: start: 20180824
  2. AUBAGIO [Suspect]
     Active Substance: TERIFLUNOMIDE
     Indication: MULTIPLE SCLEROSIS
     Dosage: 14 MG, QD
     Route: 048
     Dates: start: 20180515

REACTIONS (9)
  - Upper limb fracture [Unknown]
  - Headache [Unknown]
  - Limb discomfort [Unknown]
  - Musculoskeletal stiffness [Unknown]
  - Gait disturbance [Unknown]
  - Fall [Unknown]
  - Neuropathy peripheral [Unknown]
  - Muscular weakness [Unknown]
  - Migraine [Unknown]

NARRATIVE: CASE EVENT DATE: 2018
